FAERS Safety Report 21057483 (Version 1)
Quarter: 2022Q3

REPORT INFORMATION
  Report Type: Spontaneous
  Country: DE (occurrence: DE)
  Receive Date: 20220708
  Receipt Date: 20220708
  Transmission Date: 20221027
  Serious: Yes (Other)
  Sender: FDA-Public Use
  Company Number: DE-drreddys-LIT/GER/22/0152054

PATIENT
  Age: 47 Year
  Sex: Female

DRUGS (3)
  1. PEMETREXED [Suspect]
     Active Substance: PEMETREXED
     Indication: Lung adenocarcinoma
     Dosage: NEOADJUVANT CHEMOTHERAPY
  2. CISPLATIN [Suspect]
     Active Substance: CISPLATIN
     Indication: Lung adenocarcinoma
     Dosage: NEOADJUVANT CHEMOTHERAPY
  3. DURVALUMAB [Suspect]
     Active Substance: DURVALUMAB
     Indication: Lung adenocarcinoma
     Dosage: INITIATED 3 WEEKS FOLLOWING COMPLETION OF CHEMORADIOTHERAPY

REACTIONS (2)
  - Therapy partial responder [Unknown]
  - Pneumonitis [Recovering/Resolving]
